FAERS Safety Report 4498818-2 (Version None)
Quarter: 2004Q3

REPORT INFORMATION
  Report Type: 
  Country: None (occurrence: None)
  Receive Date: 20040927
  Receipt Date: 20040615
  Transmission Date: 20050211
  Serious: No
  Sender: FDA-Public Use
  Company Number: USA040670243

PATIENT
  Age: 6 Year
  Sex: Female
  Weight: 39 kg

DRUGS (3)
  1. STRATTERA [Suspect]
     Indication: AUTISTIC DISORDER
     Dosage: 25 MG IN THE MORNING
     Dates: start: 20040602
  2. ZYRTEC [Concomitant]
  3. RISPERDAL [Concomitant]

REACTIONS (4)
  - DRUG INEFFECTIVE [None]
  - RETCHING [None]
  - VOMITING [None]
  - WEIGHT DECREASED [None]
